FAERS Safety Report 11363602 (Version 1)
Quarter: 2015Q3

REPORT INFORMATION
  Report Type: Spontaneous
  Country: BR (occurrence: BR)
  Receive Date: 20150811
  Receipt Date: 20150811
  Transmission Date: 20151125
  Serious: Yes (Other)
  Sender: FDA-Public Use
  Company Number: PHHY2015BR096440

PATIENT
  Age: 51 Year
  Sex: Female

DRUGS (7)
  1. AMITRIPTILINA [Concomitant]
     Active Substance: AMITRIPTYLINE HYDROCHLORIDE
     Indication: PAIN
  2. OMEPRAZOLE. [Concomitant]
     Active Substance: OMEPRAZOLE
     Indication: GASTRIC DISORDER
     Dosage: 1 DF, QHS (1 TABLET AT NIGHT)
     Route: 065
  3. CARBAMAZEPINE. [Suspect]
     Active Substance: CARBAMAZEPINE
     Indication: DEPRESSION
     Dosage: 1 DF, QHS (1 TABLET AT NIGHT)
     Route: 065
  4. ENBREL [Suspect]
     Active Substance: ETANERCEPT
     Indication: RHEUMATOID ARTHRITIS
     Dosage: 50 MG, QW
     Route: 065
     Dates: start: 201502
  5. SIMVASTATIN. [Concomitant]
     Active Substance: SIMVASTATIN
     Indication: BLOOD CHOLESTEROL ABNORMAL
     Dosage: 1 DF, QHS (1 TABLET AT NIGHT)
     Route: 065
  6. LEFLUNOMIDE. [Concomitant]
     Active Substance: LEFLUNOMIDE
     Indication: PRODUCT USED FOR UNKNOWN INDICATION
     Dosage: UNK UKN, UNK
     Route: 065
  7. AMITRIPTILINA [Concomitant]
     Active Substance: AMITRIPTYLINE HYDROCHLORIDE
     Indication: SLEEP DISORDER
     Dosage: 2 DF, QHS (2 TABLETS AT NIGHT)
     Route: 065

REACTIONS (23)
  - Pain in extremity [Not Recovered/Not Resolved]
  - Musculoskeletal chest pain [Not Recovered/Not Resolved]
  - Hyperhidrosis [Recovered/Resolved]
  - Lower extremity mass [Recovered/Resolved]
  - Dysstasia [Recovered/Resolved]
  - Feeling hot [Recovered/Resolved]
  - Heart rate increased [Not Recovered/Not Resolved]
  - Influenza [Recovered/Resolved]
  - Application site reaction [Recovered/Resolved]
  - Movement disorder [Recovered/Resolved]
  - Rheumatoid arthritis [Unknown]
  - Asthenia [Not Recovered/Not Resolved]
  - Feeling cold [Recovered/Resolved]
  - Emotional distress [Unknown]
  - Cough [Recovered/Resolved]
  - Feeling abnormal [Not Recovered/Not Resolved]
  - Peripheral vascular disorder [Not Recovered/Not Resolved]
  - Arthralgia [Not Recovered/Not Resolved]
  - Decreased immune responsiveness [Recovered/Resolved]
  - Insomnia [Not Recovered/Not Resolved]
  - Pyrexia [Recovered/Resolved]
  - Anogenital warts [Not Recovered/Not Resolved]
  - Off label use [Unknown]

NARRATIVE: CASE EVENT DATE: 201502
